FAERS Safety Report 14198918 (Version 1)
Quarter: 2017Q4

REPORT INFORMATION
  Report Type: Spontaneous
  Country: US (occurrence: None)
  Receive Date: 20171117
  Receipt Date: 20171117
  Transmission Date: 20180321
  Serious: Yes (Other)
  Sender: FDA-Public Use
  Company Number: None

PATIENT
  Age: 73 Year
  Sex: Female
  Weight: 53.98 kg

DRUGS (7)
  1. ASPIRIN. [Concomitant]
     Active Substance: ASPIRIN
  2. LEVOTHYROXINE 25MCG GENERIC FOR SYNTHROID [Suspect]
     Active Substance: LEVOTHYROXINE
     Indication: THYROID FUNCTION TEST ABNORMAL
     Dosage: 25 MCG, 1 X DAY AM, 1XDAY - AM + WATER, MOUTH BEFORE BREAK ON EMPTY STOMACH WITH FULL GLASS OF WATER.
     Dates: start: 20170815
  3. LEVOTHYROXINE 25MCG GENERIC FOR SYNTHROID [Suspect]
     Active Substance: LEVOTHYROXINE
     Indication: TEMPERATURE INTOLERANCE
     Dosage: 25 MCG, 1 X DAY AM, 1XDAY - AM + WATER, MOUTH BEFORE BREAK ON EMPTY STOMACH WITH FULL GLASS OF WATER.
     Dates: start: 20170815
  4. METOPROLOL. [Concomitant]
     Active Substance: METOPROLOL
  5. PRAVASTATIN. [Concomitant]
     Active Substance: PRAVASTATIN
  6. VITAMIN D [Concomitant]
     Active Substance: CHOLECALCIFEROL
  7. LEVOTHYROXINE 25MCG GENERIC FOR SYNTHROID [Suspect]
     Active Substance: LEVOTHYROXINE
     Indication: MENTAL DISORDER
     Dosage: 25 MCG, 1 X DAY AM, 1XDAY - AM + WATER, MOUTH BEFORE BREAK ON EMPTY STOMACH WITH FULL GLASS OF WATER.
     Dates: start: 20170815

REACTIONS (4)
  - Breast pain [None]
  - Cyst [None]
  - Hormone level abnormal [None]
  - Lymphadenopathy [None]

NARRATIVE: CASE EVENT DATE: 20170815
